FAERS Safety Report 9499680 (Version 3)
Quarter: 2013Q4

REPORT INFORMATION
  Report Type: Spontaneous
  Country: US (occurrence: None)
  Receive Date: 20130107
  Receipt Date: 20131226
  Transmission Date: 20140711
  Serious: Yes (Other)
  Sender: FDA-Public Use
  Company Number: PHEH2012US022199

PATIENT
  Age: 40 Year
  Sex: Female
  Weight: 74.8 kg

DRUGS (1)
  1. GILENYA [Suspect]
     Indication: MULTIPLE SCLEROSIS
     Route: 048
     Dates: start: 20121107

REACTIONS (3)
  - Atrioventricular block first degree [None]
  - Electrocardiogram PR prolongation [None]
  - Oropharyngeal pain [None]
